FAERS Safety Report 18694209 (Version 2)
Quarter: 2021Q2

REPORT INFORMATION
  Report Type: Spontaneous
  Country: US (occurrence: US)
  Receive Date: 20210104
  Receipt Date: 20210602
  Transmission Date: 20210717
  Serious: Yes (Life-Threatening, Hospitalization, Other)
  Sender: FDA-Public Use
  Company Number: US-LUPIN PHARMACEUTICALS INC.-2020-11253

PATIENT
  Age: 39 Year
  Sex: Female

DRUGS (6)
  1. HYDROXYCHLOROQUINE [Suspect]
     Active Substance: HYDROXYCHLOROQUINE
     Indication: RHEUMATOID ARTHRITIS
     Dosage: UNK
     Route: 065
  2. METHYLPREDNISOLONE. [Suspect]
     Active Substance: METHYLPREDNISOLONE
     Indication: HODGKIN^S DISEASE
     Dosage: UNK (SALVAGE THERAPY)
     Route: 065
  3. GEMCITABINE. [Suspect]
     Active Substance: GEMCITABINE
     Indication: HODGKIN^S DISEASE
     Dosage: UNK (SALVAGE THERAPY)
     Route: 065
  4. ACETADOTE [Concomitant]
     Active Substance: ACETYLCYSTEINE
     Indication: HEPATIC FAILURE
     Dosage: UNK
     Route: 065
  5. METHYLPREDNISOLONE. [Suspect]
     Active Substance: METHYLPREDNISOLONE
     Indication: LYMPHOPROLIFERATIVE DISORDER
  6. GEMCITABINE. [Suspect]
     Active Substance: GEMCITABINE
     Indication: LYMPHOPROLIFERATIVE DISORDER

REACTIONS (14)
  - Lymphoproliferative disorder [Unknown]
  - Jaundice [Unknown]
  - Pyrexia [Unknown]
  - Condition aggravated [Unknown]
  - Transaminases increased [Unknown]
  - Hepatomegaly [Unknown]
  - Epistaxis [Unknown]
  - Hepatic failure [Unknown]
  - Ascites [Unknown]
  - Drug ineffective [Unknown]
  - Hodgkin^s disease [Unknown]
  - Hepatic steatosis [Unknown]
  - Thrombocytopenia [Not Recovered/Not Resolved]
  - Tachycardia [Unknown]
